FAERS Safety Report 8767156 (Version 2)
Quarter: 2012Q4

REPORT INFORMATION
  Report Type: 
  Country: CA (occurrence: CA)
  Receive Date: 20120904
  Receipt Date: 20120913
  Transmission Date: 20130627
  Serious: Yes (Death, Other)
  Sender: FDA-Public Use
  Company Number: CA-JNJFOC-20120814084

PATIENT

DRUGS (50)
  1. DOXORUBICIN [Suspect]
     Indication: ACUTE LYMPHOCYTIC LEUKAEMIA
     Dosage: on day 1 (intensification therapy for 30 weeks, 10 cycles - 21 days/cycle)
     Route: 042
  2. DOXORUBICIN [Suspect]
     Indication: ACUTE LYMPHOCYTIC LEUKAEMIA
     Dosage: on day 1 (central nervous system therapy for 3 weeks)
     Route: 042
  3. DOXORUBICIN [Suspect]
     Indication: ACUTE LYMPHOCYTIC LEUKAEMIA
     Dosage: on days 0 and 1 (induction therapy for 4 weeks)
     Route: 042
  4. DOXORUBICIN [Suspect]
     Indication: ACUTE LYMPHOCYTIC LEUKAEMIA
     Dosage: on days 0 and 1 (induction therapy for 4 weeks)
     Route: 042
  5. DOXORUBICIN [Suspect]
     Indication: ACUTE LYMPHOCYTIC LEUKAEMIA
     Dosage: on day 1 (intensification therapy for 30 weeks, 10 cycles - 21 days/cycle)
     Route: 042
  6. DOXORUBICIN [Suspect]
     Indication: ACUTE LYMPHOCYTIC LEUKAEMIA
     Dosage: on day 1 (central nervous system therapy for 3 weeks)
     Route: 042
  7. IMATINIB [Suspect]
     Indication: ACUTE LYMPHOCYTIC LEUKAEMIA
     Dosage: from days 2-14 (induction therapy for 4 weeks)
     Route: 048
  8. IMATINIB [Suspect]
     Indication: ACUTE LYMPHOCYTIC LEUKAEMIA
     Dosage: from day 1-14 (intensification therapy for 30 weeks, 10 cycles - 21 days/cycle)
     Route: 048
  9. IMATINIB [Suspect]
     Indication: ACUTE LYMPHOCYTIC LEUKAEMIA
     Dosage: from day 1-14 (central nervous system therapy for 3 weeks
     Route: 048
  10. IMATINIB [Suspect]
     Indication: ACUTE LYMPHOCYTIC LEUKAEMIA
     Dosage: from day 1-14 (maintenance therapy for 72 weeks, 24 weeks - 21 days/cycle)
     Route: 048
  11. PREDNISONE [Suspect]
     Indication: ACUTE LYMPHOCYTIC LEUKAEMIA
     Dosage: from day 0-28 (induction therapy for 4 weeks)
     Route: 048
  12. VINCRISTINE [Suspect]
     Indication: ACUTE LYMPHOCYTIC LEUKAEMIA
     Dosage: on days 0, 7, 14 and 21 (induction therapy for 4 weeks
     Route: 042
  13. VINCRISTINE [Suspect]
     Indication: ACUTE LYMPHOCYTIC LEUKAEMIA
     Dosage: on day 1 (central nervous system therapy for 3 weeks)
     Route: 042
  14. VINCRISTINE [Suspect]
     Indication: ACUTE LYMPHOCYTIC LEUKAEMIA
     Dosage: on day 1 (maintenance therapy for 72 weeks, 24 cycles - 21 days/cycle)
     Route: 042
  15. VINCRISTINE [Suspect]
     Indication: ACUTE LYMPHOCYTIC LEUKAEMIA
     Dosage: on day 1 (intensification therapy for 30 weeks, 10 cycles - 21 days/cycle)
     Route: 042
  16. VINBLASTINE [Suspect]
     Indication: ACUTE LYMPHOCYTIC LEUKAEMIA
     Dosage: on day 1 (central nervous system therapy for 3 weeks)
     Route: 042
  17. VINBLASTINE [Suspect]
     Indication: ACUTE LYMPHOCYTIC LEUKAEMIA
     Dosage: on day 1 (maintenance therapy for 72 weeks, 24 cycles - 21 days/cycle)
     Route: 042
  18. VINBLASTINE [Suspect]
     Indication: ACUTE LYMPHOCYTIC LEUKAEMIA
     Dosage: on day 1 (intensification therapy for 30 weeks, 10 cycles - 21 days/cycle)
     Route: 042
  19. METHOTREXATE [Suspect]
     Indication: ACUTE LYMPHOCYTIC LEUKAEMIA
     Dosage: over 1 hour on day 2 (induction therapy for 4 weeks)
     Route: 042
  20. METHOTREXATE [Suspect]
     Indication: ACUTE LYMPHOCYTIC LEUKAEMIA
     Dosage: on days 2, 9 and 16 (intensification therapy for 30 wk, 8-10 cycles only- 21 days/cycle) iv/im route
     Route: 042
  21. METHOTREXATE [Suspect]
     Indication: ACUTE LYMPHOCYTIC LEUKAEMIA
     Dosage: on days 1, 8 and 15 (maintenance therapy for 72 weeks, 24 cycles - 21 days/cycle) iv/im route
     Route: 042
  22. ASPARAGINASE [Suspect]
     Indication: ACUTE LYMPHOCYTIC LEUKAEMIA
     Dosage: 25000 IU/m2 on day 4 (induction therapy for 4 weeks)
     Route: 030
  23. ASPARAGINASE [Suspect]
     Indication: ACUTE LYMPHOCYTIC LEUKAEMIA
     Dosage: 12500 IU/m2 on days 1, 8 and 15 (intensification theray for 30 weeks, 10 cycles - 21 days/cycle)
     Route: 030
  24. 6-MERCAPTOPURINE [Suspect]
     Indication: ACUTE LYMPHOCYTIC LEUKAEMIA
     Dosage: from day 1-14 (maintenance therapy for 72 weeks, 24 cycles - 21 days/cycle)
     Route: 048
  25. 6-MERCAPTOPURINE [Suspect]
     Indication: ACUTE LYMPHOCYTIC LEUKAEMIA
     Dosage: from day 1-14 (intensification therapy for 30 weeks, 10 cycles - 21 days/cycle)
     Route: 048
  26. 6-MERCAPTOPURINE [Suspect]
     Indication: ACUTE LYMPHOCYTIC LEUKAEMIA
     Dosage: from day 1-14 (central nervous system therapy for 3 weeks)
     Route: 048
  27. RADIATION THERAPY [Suspect]
     Indication: ACUTE LYMPHOCYTIC LEUKAEMIA
     Route: 065
  28. DEXAMETHASONE [Suspect]
     Indication: ACUTE LYMPHOCYTIC LEUKAEMIA
     Dosage: from day 1-5 (maintenance therapy for 72 weeks, 24 cycles - 21 days/cycle)
     Route: 048
  29. DEXAMETHASONE [Suspect]
     Indication: ACUTE LYMPHOCYTIC LEUKAEMIA
     Dosage: from day 1-5 (intensification therapy for 30 weeks, 10 cycles - 21 days/cycle)
     Route: 048
  30. CYCLOPHOSPHAMIDE [Suspect]
     Indication: ACUTE LYMPHOCYTIC LEUKAEMIA
     Dosage: twice (Myeloablative HSCT preparative regimen)
     Route: 065
  31. RADIATION THERAPY [Suspect]
     Indication: ACUTE LYMPHOCYTIC LEUKAEMIA
     Dosage: 2 Gy in 1 fractions (reduced intensity conditioning regimen)
     Route: 065
  32. RADIATION THERAPY [Suspect]
     Indication: ACUTE LYMPHOCYTIC LEUKAEMIA
     Dosage: 12 Gy in 6 fractions or 4 Gy in 2 fractions (Myeloablative HSCT preparative regimen)
     Route: 065
  33. FLUDARABINE [Suspect]
     Indication: ACUTE LYMPHOCYTIC LEUKAEMIA
     Dosage: four times (Myeloablative HSCT preparative regimen)
     Route: 065
  34. FLUDARABINE [Suspect]
     Indication: ACUTE LYMPHOCYTIC LEUKAEMIA
     Dosage: four times (reduced intensity conditioning regimen)
     Route: 065
  35. BUSULFAN [Suspect]
     Indication: ACUTE LYMPHOCYTIC LEUKAEMIA
     Dosage: twice (reduced intensity conditioning regimen)
     Route: 065
  36. BUSULFAN [Suspect]
     Indication: ACUTE LYMPHOCYTIC LEUKAEMIA
     Dosage: four times (Myeloablative HSCT preparative regimen)
     Route: 065
  37. METHOTREXATE W/CYTARABINE/HYDROCORTISONE [Suspect]
     Indication: ACUTE LYMPHOCYTIC LEUKAEMIA
     Dosage: 40/12/15 mg, Days 0, 14 (induction therapy for 4 weeks)
     Route: 037
  38. METHOTREXATE W/CYTARABINE/HYDROCORTISONE [Suspect]
     Indication: ACUTE LYMPHOCYTIC LEUKAEMIA
     Dosage: 40/12/15 mg Days 1, 4, 8, 11 (central nervous system therapy for 3 weeks)
     Route: 037
  39. METHOTREXATE W/CYTARABINE/HYDROCORTISONE [Suspect]
     Indication: ACUTE LYMPHOCYTIC LEUKAEMIA
     Dosage: 40/12/15 mg  Every 18 weeks (maintenance therapy for 72 weeks, 24 weeks - 21 days/cycle)
     Route: 037
  40. METHOTREXATE W/CYTARABINE/HYDROCORTISONE [Suspect]
     Indication: ACUTE LYMPHOCYTIC LEUKAEMIA
     Dosage: 40/12/15 mg  Every 18 weeks intensification therapy for 30 weeks, 10 cycles - 21 days/cycle)
     Route: 037
  41. ALEMTUZUMAB [Concomitant]
     Indication: PROPHYLAXIS AGAINST GRAFT VERSUS HOST DISEASE
     Route: 065
  42. PENTAMIDINE [Concomitant]
     Indication: ANTIFUNGAL PROPHYLAXIS
     Route: 055
  43. CALCIUM AND VITAMIN D [Concomitant]
     Indication: PROPHYLAXIS
     Route: 065
  44. LEUCOVORIN [Concomitant]
     Indication: PROPHYLAXIS
     Dosage: 4 g/m2 over 1 hour on day 2
     Route: 065
  45. TRIMETHOPRIM AND SULFAMETHOXAZOLE [Concomitant]
     Indication: ANTIFUNGAL PROPHYLAXIS
     Route: 065
  46. FLUCONAZOLE [Concomitant]
     Indication: ANTIFUNGAL PROPHYLAXIS
     Route: 065
  47. ALENDRONATE [Concomitant]
     Indication: PROPHYLAXIS
     Route: 065
  48. RISEDRONATE [Concomitant]
     Indication: PROPHYLAXIS
     Route: 065
  49. CICLOSPORIN [Concomitant]
     Indication: PROPHYLAXIS AGAINST GRAFT VERSUS HOST DISEASE
     Route: 065
  50. METHOTREXATE [Concomitant]
     Indication: PROPHYLAXIS AGAINST GRAFT VERSUS HOST DISEASE
     Route: 065

REACTIONS (9)
  - Graft versus host disease [Fatal]
  - Deep vein thrombosis [Unknown]
  - Neuropathy peripheral [Unknown]
  - Ileus [Unknown]
  - Myopathy [Unknown]
  - Asthenia [Unknown]
  - Infection [Unknown]
  - Liver function test abnormal [Unknown]
  - Off label use [Unknown]
